FAERS Safety Report 5069809-8 (Version None)
Quarter: 2006Q3

REPORT INFORMATION
  Report Type: 
  Country: None (occurrence: None)
  Receive Date: 20060801
  Receipt Date: 20060801
  Transmission Date: 20061208
  Serious: Yes (Hospitalization)
  Sender: FDA-Public Use
  Company Number: None

PATIENT
  Age: 60 Year
  Sex: Male
  Weight: 158 kg

DRUGS (4)
  1. INTEGRILIN [Suspect]
     Indication: ACUTE CORONARY SYNDROME
     Dosage: DBL BOLUS THEN DRIP 20 ML/HR  CONTINUOUS INFUSION   IV
     Route: 042
     Dates: start: 20060414, end: 20060415
  2. INTEGRILIN [Suspect]
     Indication: CORONARY ANGIOPLASTY
     Dosage: DBL BOLUS THEN DRIP 20 ML/HR  CONTINUOUS INFUSION   IV
     Route: 042
     Dates: start: 20060414, end: 20060415
  3. PLAVIX [Suspect]
     Indication: ACUTE CORONARY SYNDROME
     Dosage: 300 MG X 1 THEN 75 MG DAILY X 1    DAILY   PO
     Route: 048
     Dates: start: 20060414, end: 20060415
  4. PLAVIX [Suspect]
     Indication: CORONARY ANGIOPLASTY
     Dosage: 300 MG X 1 THEN 75 MG DAILY X 1    DAILY   PO
     Route: 048
     Dates: start: 20060414, end: 20060415

REACTIONS (5)
  - HAEMORRHAGE INTRACRANIAL [None]
  - HEADACHE [None]
  - POST PROCEDURAL COMPLICATION [None]
  - VISION BLURRED [None]
  - VISUAL DISTURBANCE [None]
